FAERS Safety Report 8150491-8 (Version None)
Quarter: 2012Q1

REPORT INFORMATION
  Report Type: 
  Country: None (occurrence: None)
  Receive Date: 20120220
  Receipt Date: 20120213
  Transmission Date: 20120608
  Serious: Yes (Other)
  Sender: FDA-Public Use
  Company Number: JP-BRACCO-005641

PATIENT
  Age: 66 Year
  Sex: Male

DRUGS (4)
  1. IOPAMIDOL [Suspect]
     Indication: COMPUTERISED TOMOGRAM
     Dosage: AT 612.4 MG/ML
     Route: 042
     Dates: start: 20080301, end: 20080301
  2. VIDARABINE [Concomitant]
     Indication: ORAL HERPES
     Dates: start: 20060101, end: 20080101
  3. TIARAMIDE HYDROCHLORIDE [Concomitant]
     Indication: ORAL HERPES
     Dates: start: 20060101, end: 20080101
  4. IOPAMIDOL [Suspect]
     Indication: HEPATIC NEOPLASM MALIGNANT
     Dosage: AT 612.4 MG/ML
     Route: 042
     Dates: start: 20080301, end: 20080301

REACTIONS (1)
  - DRUG ERUPTION [None]
